FAERS Safety Report 17487927 (Version 1)
Quarter: 2020Q1

REPORT INFORMATION
  Report Type: Spontaneous
  Country: US (occurrence: US)
  Receive Date: 20200303
  Receipt Date: 20200303
  Transmission Date: 20200409
  Serious: No
  Sender: FDA-Public Use
  Company Number: US-PFIZER INC-2020091192

PATIENT
  Age: 55 Year
  Sex: Female
  Weight: 127 kg

DRUGS (2)
  1. CYTOMEL [Suspect]
     Active Substance: LIOTHYRONINE SODIUM
     Indication: HYPOTHYROIDISM
     Dosage: 10 UG, 2X/DAY [MORNING AND NIGHT]
     Route: 048
     Dates: start: 2001
  2. CELLULOSE [Suspect]
     Active Substance: POWDERED CELLULOSE

REACTIONS (7)
  - Condition aggravated [Not Recovered/Not Resolved]
  - Lethargy [Unknown]
  - Headache [Unknown]
  - Malaise [Not Recovered/Not Resolved]
  - Allergic reaction to excipient [Not Recovered/Not Resolved]
  - Product dose omission [Not Recovered/Not Resolved]
  - Fatigue [Unknown]

NARRATIVE: CASE EVENT DATE: 2018
